FAERS Safety Report 10930941 (Version 3)
Quarter: 2015Q1

REPORT INFORMATION
  Report Type: Spontaneous
  Country: JP (occurrence: JP)
  Receive Date: 20150319
  Receipt Date: 20150326
  Transmission Date: 20150721
  Serious: Yes (Hospitalization, Other)
  Sender: FDA-Public Use
  Company Number: JP-B.I. PHARMACEUTICALS,INC./RIDGEFIELD-2015-BI-13931GD

PATIENT
  Age: 9 Decade
  Sex: Female

DRUGS (1)
  1. PRADAXA [Suspect]
     Active Substance: DABIGATRAN ETEXILATE MESYLATE
     Indication: ATRIAL FIBRILLATION
     Dosage: 220 MG
     Route: 048

REACTIONS (7)
  - Inflammation [Unknown]
  - Subdural haematoma [Unknown]
  - Fall [Unknown]
  - Dural abscess [Unknown]
  - Headache [Unknown]
  - Pyrexia [Unknown]
  - Tachycardia [Unknown]

NARRATIVE: CASE EVENT DATE: 2014
